FAERS Safety Report 5424753-9 (Version None)
Quarter: 2007Q3

REPORT INFORMATION
  Report Type: 
  Country: None (occurrence: None)
  Receive Date: 20070725
  Receipt Date: 20061129
  Transmission Date: 20080115
  Serious: Yes (Other)
  Sender: FDA-Public Use
  Company Number: USA-2006-0025829

PATIENT
  Age: 16 Year
  Sex: Male

DRUGS (1)
  1. MS CONTIN [Suspect]
     Indication: DRUG ABUSER
     Dosage: 30 MG, SEE TEXT, RECTAL
     Route: 054
     Dates: start: 20061101

REACTIONS (1)
  - DRUG ABUSER [None]
